FAERS Safety Report 6045529-8 (Version None)
Quarter: 2009Q1

REPORT INFORMATION
  Report Type: 
  Country: None (occurrence: None)
  Receive Date: 20090121
  Receipt Date: 20090120
  Transmission Date: 20090719
  Serious: Yes (Hospitalization)
  Sender: FDA-Public Use
  Company Number: B0548444A

PATIENT
  Age: 10 Year
  Sex: Male

DRUGS (11)
  1. ALKERAN [Suspect]
     Indication: ALLOGENIC BONE MARROW TRANSPLANTATION THERAPY
     Dosage: 46.5MG PER DAY
     Route: 042
     Dates: start: 20071020, end: 20071023
  2. ZOVIRAX [Suspect]
     Indication: DRUG USE FOR UNKNOWN INDICATION
     Route: 042
  3. FLUDARA [Suspect]
     Indication: ALLOGENIC BONE MARROW TRANSPLANTATION THERAPY
     Dosage: 40MG PER DAY
     Route: 042
     Dates: start: 20071020, end: 20071023
  4. PROGRAF [Suspect]
     Indication: PROPHYLAXIS AGAINST GRAFT VERSUS HOST DISEASE
     Dosage: .5MG PER DAY
     Route: 042
     Dates: start: 20071024
  5. PIPERACILLIN SODIUM [Suspect]
     Indication: DRUG USE FOR UNKNOWN INDICATION
  6. MEROPENEM TRIHYDRATE [Suspect]
     Indication: DRUG USE FOR UNKNOWN INDICATION
  7. FLUCONAZOLE [Suspect]
     Indication: DRUG USE FOR UNKNOWN INDICATION
     Route: 065
  8. METHOTREXATE [Concomitant]
     Indication: PROPHYLAXIS AGAINST GRAFT VERSUS HOST DISEASE
     Dosage: 20MG PER DAY
     Route: 065
     Dates: start: 20071027, end: 20071027
  9. METHOTREXATE [Concomitant]
     Dosage: 13MG PER DAY
     Route: 065
     Dates: start: 20071029, end: 20071029
  10. METHOTREXATE [Concomitant]
     Dosage: 13MG PER DAY
     Route: 065
     Dates: start: 20071031, end: 20071031
  11. ELASE [Concomitant]
     Indication: STOMATITIS
     Route: 061
     Dates: start: 20071020, end: 20071023

REACTIONS (3)
  - DIARRHOEA [None]
  - MUCOUS MEMBRANE DISORDER [None]
  - STOMATITIS [None]
